FAERS Safety Report 4601048-4 (Version None)
Quarter: 2005Q1

REPORT INFORMATION
  Report Type: 
  Country: None (occurrence: None)
  Receive Date: 20050307
  Receipt Date: 20050307
  Transmission Date: 20050727
  Serious: Yes (Hospitalization)
  Sender: FDA-Public Use
  Company Number: None

PATIENT
  Age: 79 Year
  Sex: Female

DRUGS (11)
  1. ALLOPURINOL [Suspect]
     Indication: GOUT
     Dosage: 300 MG   DAILY   ORAL
     Route: 048
     Dates: start: 20050120, end: 20050208
  2. WARFARIN [Concomitant]
  3. LASIX [Concomitant]
  4. LIPITOR [Concomitant]
  5. IMDUR [Concomitant]
  6. COLCHICINE [Concomitant]
  7. ATENOLOL [Concomitant]
  8. ASPIRIN [Concomitant]
  9. FOSAMAX [Concomitant]
  10. OSCAL+D [Concomitant]
  11. CENTRUM [Concomitant]

REACTIONS (2)
  - RASH ERYTHEMATOUS [None]
  - RASH GENERALISED [None]
